FAERS Safety Report 12695096 (Version 3)
Quarter: 2020Q1

REPORT INFORMATION
  Report Type: Spontaneous
  Country: US (occurrence: US)
  Receive Date: 20160829
  Receipt Date: 20200310
  Transmission Date: 20200409
  Serious: Yes (Hospitalization)
  Sender: FDA-Public Use
  Company Number: US-JNJFOC-20160818772

PATIENT
  Age: 48 Year
  Sex: Female
  Weight: 92.62 kg

DRUGS (2)
  1. REMICADE [Suspect]
     Active Substance: INFLIXIMAB
     Indication: PSORIASIS
  2. REMICADE [Suspect]
     Active Substance: INFLIXIMAB
     Indication: PSORIATIC ARTHROPATHY
     Route: 042

REACTIONS (9)
  - Psoriasis [Unknown]
  - Product use issue [Unknown]
  - H1N1 influenza [Recovered/Resolved]
  - Chronic obstructive pulmonary disease [Unknown]
  - Pneumonia [Recovered/Resolved]
  - Cardiac operation [Unknown]
  - Off label use [Unknown]
  - Psoriatic arthropathy [Unknown]
  - Sleep apnoea syndrome [Unknown]

NARRATIVE: CASE EVENT DATE: 201303
